FAERS Safety Report 11796519 (Version 3)
Quarter: 2015Q4

REPORT INFORMATION
  Report Type: Report from Study
  Country: NL (occurrence: NL)
  Receive Date: 20151203
  Receipt Date: 20151221
  Transmission Date: 20160305
  Serious: Yes (Other)
  Sender: FDA-Public Use
  Company Number: NL-VIIV HEALTHCARE LIMITED-ES2015GSK161429

PATIENT
  Sex: Female

DRUGS (18)
  1. POTASSIUM IODIDE [Concomitant]
     Active Substance: POTASSIUM IODIDE
  2. DOLUTEGRAVIR [Suspect]
     Active Substance: DOLUTEGRAVIR
     Indication: HIV INFECTION
     Route: 048
  3. KIVEXA [Concomitant]
     Active Substance: ABACAVIR SULFATE\LAMIVUDINE
  4. TRIUMEQ [Concomitant]
     Active Substance: ABACAVIR SULFATE\DOLUTEGRAVIR SODIUM\LAMIVUDINE
     Dosage: UNK
     Dates: start: 201509
  5. BUSCOPAN [Concomitant]
     Active Substance: BUTYLSCOPOLAMINE BROMIDE
  6. FOSFOMYCIN [Concomitant]
     Active Substance: FOSFOMYCIN
  7. IODINE [Concomitant]
     Active Substance: IODINE
  8. FOLIC ACID. [Concomitant]
     Active Substance: FOLIC ACID
  9. DEXAMETHASONE. [Concomitant]
     Active Substance: DEXAMETHASONE
  10. DIAZEPAM. [Concomitant]
     Active Substance: DIAZEPAM
  11. ISOTONIC SALINE [Concomitant]
     Active Substance: SODIUM CHLORIDE
  12. ZOLPIDEM [Concomitant]
     Active Substance: ZOLPIDEM\ZOLPIDEM TARTRATE
  13. VITAMIN B12 [Concomitant]
     Active Substance: CYANOCOBALAMIN
  14. CEFUROXIME. [Concomitant]
     Active Substance: CEFUROXIME
  15. ACETAMINOPHEN. [Concomitant]
     Active Substance: ACETAMINOPHEN
  16. DEXCHLORPHENIRAMINE [Concomitant]
     Active Substance: DEXCHLORPHENIRAMINE
  17. URSODEOXYCHOLIC ACID [Concomitant]
     Active Substance: URSODIOL
  18. PROGESTERONE. [Concomitant]
     Active Substance: PROGESTERONE

REACTIONS (2)
  - Exposure during pregnancy [Unknown]
  - Foetal death [Unknown]

NARRATIVE: CASE EVENT DATE: 201509
